FAERS Safety Report 8773983 (Version 3)
Quarter: 2012Q4

REPORT INFORMATION
  Report Type: 
  Country: US (occurrence: US)
  Receive Date: 20120907
  Receipt Date: 20121128
  Transmission Date: 20130627
  Serious: Yes (Hospitalization, Other)
  Sender: FDA-Public Use
  Company Number: PHEH2012US017052

PATIENT
  Age: 58 Year
  Sex: Male

DRUGS (8)
  1. GILENYA [Suspect]
     Indication: MULTIPLE SCLEROSIS
     Dosage: 0.5 mg, QD
     Route: 048
     Dates: start: 20120515, end: 20120825
  2. MELOXICAM [Concomitant]
     Dosage: UNK UKN, UNK
  3. AMPYRA [Concomitant]
     Dosage: UNK UKN, UNK
  4. VIAGRA [Concomitant]
     Dosage: UNK UKN, UNK
  5. CLONAZEPAM [Concomitant]
     Dosage: UNK UKN, UNK
  6. DETROL [Concomitant]
     Dosage: UNK UKN, UNK
  7. FLUMOL [Concomitant]
     Dosage: UNK UKN, UNK
  8. CALPOL [Concomitant]
     Dosage: UNK UKN, UNK

REACTIONS (2)
  - Cellulitis [Recovered/Resolved]
  - Feeling hot [Recovered/Resolved]
